FAERS Safety Report 7774650-9 (Version None)
Quarter: 2011Q3

REPORT INFORMATION
  Report Type: 
  Country: None (occurrence: None)
  Receive Date: 20110923
  Receipt Date: 20110914
  Transmission Date: 20111222
  Serious: Yes (Other)
  Sender: FDA-Public Use
  Company Number: US-PFIZER INC-2011217900

PATIENT
  Sex: Female
  Weight: 80.726 kg

DRUGS (10)
  1. PRISTIQ [Suspect]
     Indication: DEPRESSION
     Dosage: 50 MG, 1X/DAY
     Route: 048
     Dates: start: 20090801, end: 20091229
  2. PRISTIQ [Suspect]
     Dosage: 100 MG, 1X/DAY
     Dates: start: 20110831, end: 20110101
  3. SIMVASTATIN [Concomitant]
     Indication: BLOOD CHOLESTEROL INCREASED
     Dosage: UNK
  4. QUAZEPAM [Concomitant]
     Indication: ANXIETY
     Dosage: UNK
  5. PROZAC [Concomitant]
     Dosage: UNK
  6. PRISTIQ [Suspect]
     Dosage: 150 MG, 1X/DAY
     Dates: start: 20100830, end: 20110831
  7. PRISTIQ [Suspect]
     Dosage: 50 MG, 1X/DAY
     Dates: start: 20110101, end: 20110913
  8. PRISTIQ [Suspect]
     Dosage: 100 MG, 1X/DAY
     Dates: start: 20091229, end: 20100830
  9. ADDERALL 5 [Concomitant]
     Indication: DISTURBANCE IN ATTENTION
     Dosage: UNK
  10. MIDODRINE [Concomitant]
     Indication: HYPOTENSION
     Dosage: UNK, AS NEEDED

REACTIONS (12)
  - MICTURITION DISORDER [None]
  - ASTHENIA [None]
  - DIZZINESS [None]
  - APHAGIA [None]
  - BEDRIDDEN [None]
  - HEADACHE [None]
  - ABNORMAL FAECES [None]
  - INSOMNIA [None]
  - FEELING HOT [None]
  - NAUSEA [None]
  - VISION BLURRED [None]
  - ABDOMINAL PAIN [None]
